FAERS Safety Report 8955929 (Version 1)
Quarter: 2012Q4

REPORT INFORMATION
  Report Type: 
  Country: US (occurrence: US)
  Receive Date: 20121210
  Receipt Date: 20121210
  Transmission Date: 20130627
  Serious: Yes (Other)
  Sender: FDA-Public Use
  Company Number: PHEH2012US024093

PATIENT
  Sex: Female

DRUGS (3)
  1. DIOVAN HCT [Suspect]
     Dosage: 1 DF (320/25 mg), QD
     Route: 048
     Dates: start: 2009
  2. INDERAL [Suspect]
  3. SYNTHROID [Concomitant]

REACTIONS (4)
  - Cardiac flutter [Unknown]
  - Arthritis [Unknown]
  - Vision blurred [Unknown]
  - Vertigo [Unknown]
